FAERS Safety Report 17898788 (Version 1)
Quarter: 2020Q2

REPORT INFORMATION
  Report Type: Spontaneous
  Country: DE (occurrence: DE)
  Receive Date: 20200615
  Receipt Date: 20200615
  Transmission Date: 20200714
  Serious: Yes (Death, Hospitalization)
  Sender: FDA-Public Use
  Company Number: DE-ANIPHARMA-2020-DE-000121

PATIENT
  Age: 90 Year
  Sex: Male
  Weight: 65 kg

DRUGS (4)
  1. BICALUTAMIDE. [Concomitant]
     Active Substance: BICALUTAMIDE
     Dosage: 50 MG QD
     Route: 048
  2. APIXABAN [Concomitant]
     Active Substance: APIXABAN
     Dosage: 2.5 MG BID
     Route: 048
  3. CANDESARTAN CILEXETIL AND HYDROCHLOROTHIAZIDE [Suspect]
     Active Substance: CANDESARTAN CILEXETIL\HYDROCHLOROTHIAZIDE
     Indication: PRODUCT USED FOR UNKNOWN INDICATION
     Dosage: 8/12.5 MILLIGRAM, EVERY DAY
     Route: 048
  4. CARVEDILOL. [Concomitant]
     Active Substance: CARVEDILOL
     Dosage: 6.25 MG BID
     Route: 048

REACTIONS (11)
  - General physical health deterioration [Unknown]
  - Renal impairment [Unknown]
  - Decreased appetite [None]
  - Product monitoring error [Unknown]
  - Dehydration [Unknown]
  - Off label use [Unknown]
  - Oedema peripheral [Unknown]
  - Asthenia [Unknown]
  - Death [Fatal]
  - Confusional state [Unknown]
  - Electrolyte imbalance [Unknown]

NARRATIVE: CASE EVENT DATE: 20191122
